FAERS Safety Report 18550534 (Version 2)
Quarter: 2022Q2

REPORT INFORMATION
  Report Type: Spontaneous
  Country: BR (occurrence: BR)
  Receive Date: 20201126
  Receipt Date: 20220628
  Transmission Date: 20220721
  Serious: Yes (Other)
  Sender: FDA-Public Use
  Company Number: BR-GLAXOSMITHKLINE-BR2020AMR231706

PATIENT

DRUGS (1)
  1. ZOVIRAX [Suspect]
     Active Substance: ACYCLOVIR
     Indication: Meningitis herpes
     Dosage: UNK, 60MG/KG/DAY
     Dates: start: 20201023

REACTIONS (4)
  - Combined immunodeficiency [Unknown]
  - Pancytopenia [Unknown]
  - Neutrophil count decreased [Unknown]
  - Lymphocyte count increased [Unknown]

NARRATIVE: CASE EVENT DATE: 20201029
